FAERS Safety Report 5412384-6 (Version None)
Quarter: 2007Q3

REPORT INFORMATION
  Report Type: 
  Country: None (occurrence: None)
  Receive Date: 20070713
  Receipt Date: 20070504
  Transmission Date: 20080115
  Serious: No
  Sender: FDA-Public Use
  Company Number: 2007SP001673

PATIENT
  Age: 34 Year
  Sex: Male
  Weight: 97.5234 kg

DRUGS (12)
  1. LUNESTA [Suspect]
     Indication: INSOMNIA
     Dosage: SEE IMAGE
     Route: 048
     Dates: start: 20061201, end: 20070101
  2. LUNESTA [Suspect]
     Indication: INSOMNIA
     Dosage: SEE IMAGE
     Route: 048
     Dates: start: 20070101, end: 20070501
  3. LUNESTA [Suspect]
     Indication: INSOMNIA
     Dosage: SEE IMAGE
     Route: 048
     Dates: start: 20070501, end: 20070501
  4. LUNESTA [Suspect]
     Indication: INSOMNIA
     Dosage: SEE IMAGE
     Route: 048
     Dates: start: 20070501
  5. FENTANYL [Concomitant]
  6. RITALIN [Concomitant]
  7. PHENTERMINE HYDROCHLORIDE [Concomitant]
  8. LORTAB [Concomitant]
  9. ATENOLOL [Concomitant]
  10. TAMSULOSIN HCL [Concomitant]
  11. ALLOPURINOL [Concomitant]
  12. AMBIEN [Concomitant]

REACTIONS (2)
  - DRUG EFFECT DECREASED [None]
  - INSOMNIA [None]
